FAERS Safety Report 6165014-2 (Version None)
Quarter: 2009Q2

REPORT INFORMATION
  Report Type: 
  Country: None (occurrence: None)
  Receive Date: 20090421
  Receipt Date: 20090421
  Transmission Date: 20091009
  Serious: Yes (Disabling, Other)
  Sender: FDA-Public Use
  Company Number: None

PATIENT
  Age: 45 Year
  Sex: Female
  Weight: 90.7194 kg

DRUGS (1)
  1. ROGAINE (FOR WOMEN) [Suspect]
     Indication: ALOPECIA
     Dosage: ONE DROPPER TWICE DAILY TOPICAL
     Route: 061

REACTIONS (2)
  - ALOPECIA [None]
  - DRUG HYPERSENSITIVITY [None]
